FAERS Safety Report 16868441 (Version 1)
Quarter: 2019Q4

REPORT INFORMATION
  Report Type: Spontaneous
  Country: US (occurrence: US)
  Receive Date: 20190930
  Receipt Date: 20190930
  Transmission Date: 20200122
  Serious: No
  Sender: FDA-Public Use
  Company Number: None

PATIENT

DRUGS (1)
  1. LITHIUM. [Suspect]
     Active Substance: LITHIUM

REACTIONS (5)
  - Drug ineffective [None]
  - Mania [None]
  - Irritability [None]
  - Condition aggravated [None]
  - Somnolence [None]
